FAERS Safety Report 24815812 (Version 1)
Quarter: 2025Q1

REPORT INFORMATION
  Report Type: Report from Study
  Country: CA (occurrence: CA)
  Receive Date: 20250107
  Receipt Date: 20250107
  Transmission Date: 20250409
  Serious: Yes (Death)
  Sender: ABBVIE
  Company Number: CA-ABBVIE-6071760

PATIENT
  Age: 84 Year
  Sex: Male

DRUGS (14)
  1. VENCLEXTA [Suspect]
     Active Substance: VENETOCLAX
     Indication: Acute myeloid leukaemia
     Route: 048
     Dates: start: 20240714, end: 20240714
  2. VENCLEXTA [Suspect]
     Active Substance: VENETOCLAX
     Indication: Acute myeloid leukaemia
     Route: 048
     Dates: start: 20240715, end: 20240715
  3. VENCLEXTA [Suspect]
     Active Substance: VENETOCLAX
     Indication: Acute myeloid leukaemia
     Route: 048
     Dates: start: 20240716, end: 20240720
  4. covid-19 Vaccine mRNA [Concomitant]
     Indication: COVID-19 immunisation
     Route: 030
  5. NYSTATIN [Concomitant]
     Active Substance: NYSTATIN
     Indication: Oropharyngeal pain
     Route: 048
     Dates: start: 20240812, end: 20240816
  6. NYSTATIN [Concomitant]
     Active Substance: NYSTATIN
     Indication: Oropharyngeal pain
     Dosage: DOSE: 40,000  OTHER
     Route: 048
     Dates: start: 20240911, end: 20240915
  7. AMOXICILLIN\CLAVULANIC ACID [Concomitant]
     Active Substance: AMOXICILLIN\CLAVULANIC ACID
     Indication: Infection prophylaxis
     Dosage: 875/125 MG
     Route: 048
     Dates: start: 20240828, end: 20240903
  8. AMOXICILLIN\CLAVULANIC ACID [Concomitant]
     Active Substance: AMOXICILLIN\CLAVULANIC ACID
     Indication: Infection prophylaxis
     Dosage: 875/125 MG
     Route: 048
     Dates: start: 20240910, end: 20241008
  9. HUMAN RED BLOOD CELL [Concomitant]
     Active Substance: HUMAN RED BLOOD CELL
     Indication: Anaemia
     Dates: start: 20240717, end: 20240717
  10. TYLENOL WITH CODEINE [Concomitant]
     Active Substance: ACETAMINOPHEN\CODEINE PHOSPHATE
     Indication: Oropharyngeal pain
     Route: 048
     Dates: start: 20240813, end: 20240823
  11. APIXABAN [Concomitant]
     Active Substance: APIXABAN
     Indication: Anticoagulant therapy
     Route: 048
     Dates: start: 20240910, end: 20241230
  12. HYDROMORPHONE [Concomitant]
     Active Substance: HYDROMORPHONE
     Indication: Pain management
     Dosage: 0.5 MG ?INTRAVENOUS
     Dates: start: 20240906, end: 20240906
  13. AZACITIDINE [Suspect]
     Active Substance: AZACITIDINE
     Indication: Product used for unknown indication
     Route: 065
     Dates: start: 20241104, end: 20241108
  14. AZACITIDINE [Suspect]
     Active Substance: AZACITIDINE
     Indication: Product used for unknown indication
     Route: 065
     Dates: start: 20240714, end: 20240720

REACTIONS (1)
  - Death [Fatal]

NARRATIVE: CASE EVENT DATE: 20241230
